FAERS Safety Report 20950280 (Version 1)
Quarter: 2022Q2

REPORT INFORMATION
  Report Type: Spontaneous
  Country: US (occurrence: None)
  Receive Date: 20220610
  Receipt Date: 20220610
  Transmission Date: 20220721
  Serious: Yes (Death)
  Sender: FDA-Public Use
  Company Number: None

PATIENT
  Age: 14 Year
  Sex: Male

DRUGS (9)
  1. MYCOPHENOLIC ACID [Suspect]
     Active Substance: MYCOPHENOLIC ACID
     Indication: Lung transplant
     Dosage: FREQUENCY : TWICE A DAY;?
     Route: 048
     Dates: start: 20160610, end: 20211221
  2. SIROLIMUS [Concomitant]
     Active Substance: SIROLIMUS
  3. TACROLIMUS [Concomitant]
     Active Substance: TACROLIMUS
  4. BACTRIM [Concomitant]
     Active Substance: SULFAMETHOXAZOLE\TRIMETHOPRIM
  5. NYSTATIN [Concomitant]
     Active Substance: NYSTATIN
  6. VITAMIN D [Concomitant]
     Active Substance: VITAMIN D NOS
  7. FAMOTIDINE [Concomitant]
     Active Substance: FAMOTIDINE
  8. AZITHROMYCIN [Concomitant]
     Active Substance: AZITHROMYCIN
  9. PREDNISONE [Concomitant]
     Active Substance: PREDNISONE

REACTIONS (2)
  - Lymphoma [None]
  - Lung transplant rejection [None]

NARRATIVE: CASE EVENT DATE: 20220609
